APPROVED DRUG PRODUCT: OMEPRAZOLE
Active Ingredient: OMEPRAZOLE
Strength: 40MG
Dosage Form/Route: CAPSULE, DELAYED REL PELLETS;ORAL
Application: A204661 | Product #002
Applicant: TEVA PHARMACEUTICALS USA
Approved: Jun 13, 2017 | RLD: No | RS: No | Type: DISCN